FAERS Safety Report 10206994 (Version 1)
Quarter: 2014Q2

REPORT INFORMATION
  Report Type: Report from Study
  Country: FI (occurrence: FI)
  Receive Date: 20140530
  Receipt Date: 20140530
  Transmission Date: 20141212
  Serious: Yes (Death)
  Sender: FDA-Public Use
  Company Number: FI-PFIZER INC-2014147239

PATIENT
  Age: 31 Year
  Sex: Male

DRUGS (5)
  1. PREGABALIN [Suspect]
     Dosage: UNK
  2. OXAZEPAM [Concomitant]
     Dosage: UNK
  3. TEMAZEPAM [Concomitant]
     Dosage: UNK
  4. QUETIAPINE [Concomitant]
     Dosage: UNK
  5. LEVOMEPROMAZINE [Concomitant]
     Dosage: UNK

REACTIONS (3)
  - Intentional product misuse [Fatal]
  - Completed suicide [Fatal]
  - Toxicity to various agents [Fatal]
